FAERS Safety Report 22343960 (Version 1)
Quarter: 2023Q2

REPORT INFORMATION
  Report Type: Spontaneous
  Country: US (occurrence: US)
  Receive Date: 20230519
  Receipt Date: 20230519
  Transmission Date: 20230722
  Serious: No
  Sender: FDA-Public Use
  Company Number: US-GSK-US2023AMR067825

PATIENT

DRUGS (2)
  1. NUCALA [Suspect]
     Active Substance: MEPOLIZUMAB
     Indication: Asthma
     Dosage: UNK UNK, Q4W (ONCE A MONTH)
  2. NUCALA [Suspect]
     Active Substance: MEPOLIZUMAB
     Indication: Hyper IgE syndrome

REACTIONS (1)
  - Blood immunoglobulin E increased [Unknown]
